FAERS Safety Report 9722735 (Version 2)
Quarter: 2013Q4

REPORT INFORMATION
  Report Type: Spontaneous
  Country: US (occurrence: US)
  Receive Date: 20131202
  Receipt Date: 20131213
  Transmission Date: 20140711
  Serious: No
  Sender: FDA-Public Use
  Company Number: US-PFIZER INC-2013339457

PATIENT
  Age: 66 Year
  Sex: Male

DRUGS (1)
  1. SULFADIAZINE SILVER [Suspect]
     Indication: THERMAL BURN
     Dosage: TWO TIMES A DAY
     Route: 061
     Dates: start: 20131101, end: 20131122

REACTIONS (1)
  - Eyelid oedema [Recovered/Resolved]
